FAERS Safety Report 8354214-9 (Version None)
Quarter: 2012Q2

REPORT INFORMATION
  Report Type: 
  Country: None (occurrence: None)
  Receive Date: 20120511
  Receipt Date: 20120430
  Transmission Date: 20120825
  Serious: Yes (Other)
  Sender: FDA-Public Use
  Company Number: CN-JNJFOC-20120508661

PATIENT

DRUGS (19)
  1. DOXORUBICIN HCL [Suspect]
     Indication: NON-HODGKIN'S LYMPHOMA
     Dosage: CYCLE 1
     Route: 042
  2. EPIRUBICIN [Suspect]
     Indication: NON-HODGKIN'S LYMPHOMA
     Dosage: CYCLE 1
     Route: 042
  3. CYCLOPHOSPHAMIDE [Suspect]
     Indication: NON-HODGKIN'S LYMPHOMA
     Dosage: CYCLE 1
     Route: 042
  4. METHOTREXATE [Suspect]
     Indication: ACUTE LYMPHOCYTIC LEUKAEMIA
     Dosage: CYCLE 1
     Route: 042
  5. CYTARABINE [Suspect]
     Indication: ACUTE LYMPHOCYTIC LEUKAEMIA
     Dosage: CYCLE 1
     Route: 042
  6. LEUCOVORIN CALCIUM [Concomitant]
     Route: 065
  7. MESNA [Suspect]
     Indication: NON-HODGKIN'S LYMPHOMA
     Dosage: CYCLE 1
     Route: 042
  8. MESNA [Suspect]
     Indication: ACUTE MYELOID LEUKAEMIA
     Dosage: CYCLE 1
     Route: 042
  9. DOXORUBICIN HCL [Suspect]
     Indication: ACUTE LYMPHOCYTIC LEUKAEMIA
     Dosage: CYCLE 1
     Route: 042
  10. CYTARABINE [Suspect]
     Indication: NON-HODGKIN'S LYMPHOMA
     Dosage: CYCLE 1
     Route: 042
  11. DEXAMETHASONE [Suspect]
     Indication: ACUTE LYMPHOCYTIC LEUKAEMIA
     Dosage: CYCLE 1
     Route: 042
  12. VINDESINE [Suspect]
     Indication: ACUTE LYMPHOCYTIC LEUKAEMIA
     Dosage: CYCLE 1
     Route: 042
  13. EPIRUBICIN [Suspect]
     Indication: ACUTE LYMPHOCYTIC LEUKAEMIA
     Dosage: CYCLE 1
     Route: 042
  14. CYCLOPHOSPHAMIDE [Suspect]
     Indication: ACUTE LYMPHOCYTIC LEUKAEMIA
     Dosage: CYCLE 1
     Route: 042
  15. METHOTREXATE [Suspect]
     Indication: NON-HODGKIN'S LYMPHOMA
     Dosage: CYCLE 1
     Route: 042
  16. VINDESINE [Suspect]
     Indication: NON-HODGKIN'S LYMPHOMA
     Dosage: CYCLE 1
     Route: 042
  17. VINCRISTINE [Suspect]
     Indication: ACUTE LYMPHOCYTIC LEUKAEMIA
     Dosage: CYCLE 1
     Route: 042
  18. VINCRISTINE [Suspect]
     Indication: NON-HODGKIN'S LYMPHOMA
     Dosage: CYCLE 1
     Route: 042
  19. DEXAMETHASONE [Suspect]
     Indication: NON-HODGKIN'S LYMPHOMA
     Dosage: CYCLE 1
     Route: 042

REACTIONS (2)
  - HEPATOTOXICITY [None]
  - OFF LABEL USE [None]
